FAERS Safety Report 8547472-9 (Version None)
Quarter: 2012Q3

REPORT INFORMATION
  Report Type: 
  Country: None (occurrence: None)
  Receive Date: 20120727
  Receipt Date: 20120419
  Transmission Date: 20120928
  Serious: No
  Sender: FDA-Public Use
  Company Number: US-ASTRAZENECA-2012SE26238

PATIENT
  Age: 43 Year
  Sex: Female
  Weight: 63.5 kg

DRUGS (9)
  1. SEROQUEL XR [Suspect]
     Indication: SCHIZOPHRENIA
     Route: 048
  2. ZOLOFT [Concomitant]
     Indication: DEPRESSION
  3. DEXALANT [Concomitant]
     Indication: GASTROOESOPHAGEAL REFLUX DISEASE
     Dosage: DAILY
  4. SPIRONOLACTONE [Concomitant]
  5. KLONOPIN [Concomitant]
     Dosage: TWO TIMES A DAY
  6. NEURONTIN [Concomitant]
     Indication: NEUROPATHY PERIPHERAL
     Dosage: THREE TIMES A DAY
  7. ZOLOFT [Concomitant]
     Indication: PAIN
  8. PRAVASTATIN [Concomitant]
     Indication: BLOOD CHOLESTEROL
     Dosage: DAILY
  9. ASPIRIN [Concomitant]

REACTIONS (7)
  - GAIT DISTURBANCE [None]
  - DIZZINESS [None]
  - ASTHENIA [None]
  - MUSCULAR WEAKNESS [None]
  - DRUG HYPERSENSITIVITY [None]
  - DYSPHEMIA [None]
  - INTENTIONAL DRUG MISUSE [None]
